FAERS Safety Report 22228032 (Version 1)
Quarter: 2023Q2

REPORT INFORMATION
  Report Type: Other
  Country: IT (occurrence: IT)
  Receive Date: 20230419
  Receipt Date: 20230419
  Transmission Date: 20230721
  Serious: Yes (Hospitalization, Other)
  Sender: FDA-Public Use
  Company Number: None

PATIENT
  Age: 54 Year
  Sex: Male
  Weight: 70 kg

DRUGS (4)
  1. IBUPROFEN [Suspect]
     Active Substance: IBUPROFEN
     Indication: Muscle contracture
     Dosage: 600 MILLIGRAM, QD TABLET (PER 5GG 1/DIE, POI AUMENTATA A 3/DIE PER ALTRI 5GG)
     Route: 048
     Dates: start: 20230212, end: 20230222
  2. TACHIPIRINA [Suspect]
     Active Substance: ACETAMINOPHEN
     Indication: Muscle contracture
     Dosage: 1000 MILLIGRAM, TID (2CP ASSIEME PER FARE 1000MG, RIPETENDO 3 VOLTE/DIE)
     Route: 048
     Dates: start: 20230212, end: 20230217
  3. THIOCOLCHICOSIDE [Suspect]
     Active Substance: THIOCOLCHICOSIDE
     Indication: Muscle contracture
     Dosage: 8 MILLIGRAM, TID (INCREASED TO 8MG 3 TIMES/DAY. PZ HAD 4 MG CPS AT HOME AND USED THOSE ADDING THEM U
     Route: 048
     Dates: start: 20230218, end: 20230222
  4. THIOCOLCHICOSIDE [Suspect]
     Active Substance: THIOCOLCHICOSIDE
     Indication: Muscle contracture
     Dosage: 4 MILLIGRAM, QD (PER 5GG MUSCORIL 4MG 1VOLTA/DIE)
     Route: 048
     Dates: start: 20230212, end: 20230217

REACTIONS (2)
  - Pain [None]
  - Treatment failure [None]

NARRATIVE: CASE EVENT DATE: 20230212
